FAERS Safety Report 5021960-4 (Version None)
Quarter: 2006Q2

REPORT INFORMATION
  Report Type: 
  Country: None (occurrence: None)
  Receive Date: 20060501
  Receipt Date: 20060119
  Transmission Date: 20061013
  Serious: No
  Sender: FDA-Public Use
  Company Number: 200520547US

PATIENT
  Age: 53 Year
  Sex: Male

DRUGS (5)
  1. KETEK [Suspect]
     Indication: BRONCHITIS
     Dates: start: 20051202, end: 20051204
  2. KETEK [Suspect]
     Indication: HEADACHE
     Dates: start: 20051202, end: 20051204
  3. KETEK [Suspect]
     Indication: SINUS HEADACHE
     Dates: start: 20051202, end: 20051204
  4. HYDROCODONE [Concomitant]
  5. INDOMETHACIN [Concomitant]

REACTIONS (3)
  - DIPLOPIA [None]
  - STRABISMUS [None]
  - VISUAL DISTURBANCE [None]
